FAERS Safety Report 9591808 (Version 1)
Quarter: 2013Q4

REPORT INFORMATION
  Report Type: Spontaneous
  Country: US (occurrence: US)
  Receive Date: 20131004
  Receipt Date: 20131004
  Transmission Date: 20140711
  Serious: No
  Sender: FDA-Public Use
  Company Number: US-AMGEN-USASP2012083136

PATIENT
  Age: 45 Year
  Sex: Female
  Weight: 65.76 kg

DRUGS (7)
  1. ENBREL [Suspect]
     Indication: PSORIASIS
     Dosage: 50 MG, QWK
     Route: 058
  2. ENBREL [Suspect]
     Indication: RHEUMATOID ARTHRITIS
  3. PRISTIQ [Concomitant]
     Dosage: 50 MG, UNK
     Route: 048
  4. ESTRATEST [Concomitant]
     Dosage: UNK
     Route: 048
  5. MS-CONTIN [Concomitant]
     Dosage: 30 MG CR, UNK
     Route: 048
  6. METHOTREXATE                       /00113802/ [Concomitant]
     Dosage: 2.5 MG, UNK
     Route: 048
  7. HUMIRA [Concomitant]
     Dosage: 40 MG/0.8 UNK
     Route: 058

REACTIONS (1)
  - Drug ineffective [Unknown]
